FAERS Safety Report 11837236 (Version 2)
Quarter: 2016Q4

REPORT INFORMATION
  Report Type: Spontaneous
  Country: US (occurrence: US)
  Receive Date: 20151215
  Receipt Date: 20161017
  Transmission Date: 20170206
  Serious: No
  Sender: FDA-Public Use
  Company Number: US-PFIZER INC-2014196290

PATIENT
  Age: 41 Year
  Sex: Female

DRUGS (20)
  1. TRACLEER [Concomitant]
     Active Substance: BOSENTAN
     Dosage: 125 MG, 2X/DAY
     Route: 048
     Dates: start: 20160114
  2. PHENERGAN [Concomitant]
     Active Substance: PROMETHAZINE HYDROCHLORIDE
     Dosage: 25 MG, AS NEEDED(ONE TABLET BY MOUTH TWO TIMES A DAY AND AN EXTRA TABLET AS NEEDED)
     Route: 048
     Dates: start: 20160926
  3. REVATIO [Suspect]
     Active Substance: SILDENAFIL CITRATE
     Dosage: 40 MG, 3X/DAY (2 TABS BY MOUTH 3 TIMES A DAY)
     Route: 048
     Dates: start: 20160930
  4. FLONASE [Concomitant]
     Active Substance: FLUTICASONE PROPIONATE
     Dosage: 1 DF, DAILY(50MCG/ACTUATION; USE 1 SPRAY IN EACH NOSTRIL DAILY)
     Route: 045
  5. GAS-X MAX STRENGTH [Concomitant]
     Dosage: 125 MG, UNK
     Route: 048
  6. JANTOVEN [Concomitant]
     Active Substance: WARFARIN SODIUM
     Dosage: UNK UNK, DAILY (TAKE 1.5 TABLETS BY MOUTH DAILY EXCEPT 2 TABLETS ON WEDNESDAY AND SATURDAY)
     Route: 048
     Dates: start: 20160914
  7. REVATIO [Suspect]
     Active Substance: SILDENAFIL CITRATE
     Indication: PULMONARY HYPERTENSION
     Dosage: 40 MG, 3X/DAY
     Route: 048
  8. ELAVIL [Concomitant]
     Active Substance: AMITRIPTYLINE HYDROCHLORIDE
     Dosage: 30 MG, 1X/DAY (TAKE 3 TABLETS BY MOUTH AT BEDTIME)
     Route: 048
     Dates: start: 20140827
  9. PROZAC [Concomitant]
     Active Substance: FLUOXETINE HYDROCHLORIDE
     Dosage: 40 MG, 1X/DAY (40MG BY MOUTH EVERY MORNING)
     Route: 048
  10. LOVENOX [Concomitant]
     Active Substance: ENOXAPARIN SODIUM
     Dosage: 0.6 ML, 2X/DAY (INJECT 0.6ML INTO THE SKIN EVERY 12 HOURS)
     Route: 058
     Dates: start: 20160329
  11. CLARITIN [Concomitant]
     Active Substance: LORATADINE
     Dosage: 10 MG, AS NEEDED
     Route: 048
  12. PEPCID [Concomitant]
     Active Substance: FAMOTIDINE
     Dosage: 20 MG, DAILY
     Route: 048
  13. ORENITRAM [Concomitant]
     Active Substance: TREPROSTINIL
     Dosage: 6.75 MG, 3X/DAY
     Route: 048
  14. ALBUTEROL SULFATE. [Concomitant]
     Active Substance: ALBUTEROL SULFATE
     Indication: WHEEZING
     Dosage: 2 DF, AS NEEDED(90 MCG/ACTUATION INHL INHALER; TAKE 2 PUFFS EVERY 6 HOURS AS NEEDED)
     Route: 055
  15. FIORICET [Concomitant]
     Active Substance: ACETAMINOPHEN\BUTALBITAL\CAFFEINE
     Dosage: 1 DF, AS NEEDED (BUTALBITAL 50MG, CAFFEINE 325MG, PARACETAMOL 40MG) (EVERY SIX HOURS AS NEEDED)
     Route: 048
     Dates: start: 20140408
  16. LASIX [Concomitant]
     Active Substance: FUROSEMIDE
     Dosage: 40 MG, AS NEEDED (TAKE 2 TABLETS BY MOUTH DAILY AS NEEDED)
     Route: 048
     Dates: start: 20160516
  17. REVATIO [Suspect]
     Active Substance: SILDENAFIL CITRATE
     Dosage: 120 MG, DAILY (DOSE IS 6, 20MG TABLETS A DAY)
  18. KLONOPIN [Concomitant]
     Active Substance: CLONAZEPAM
     Dosage: 0.5 MG, 3X/DAY (1 TABS QAM, 2 TAB Q NOON, 1 TAB QPM)
     Route: 048
     Dates: start: 20140507
  19. OXYGEN. [Concomitant]
     Active Substance: OXYGEN
     Dosage: 2 L, UNK
     Route: 055
  20. KLOR-CON [Concomitant]
     Active Substance: POTASSIUM CHLORIDE
     Dosage: 20 MEQ, 2X/DAY
     Route: 048
     Dates: start: 20160928

REACTIONS (2)
  - Product use issue [Unknown]
  - Influenza [Unknown]
